FAERS Safety Report 7875269-1 (Version None)
Quarter: 2011Q4

REPORT INFORMATION
  Report Type: 
  Country: None (occurrence: None)
  Receive Date: 20111031
  Receipt Date: 20111021
  Transmission Date: 20120403
  Serious: Yes (Other)
  Sender: FDA-Public Use
  Company Number: US-PERRIGO-11US009065

PATIENT
  Sex: Male
  Weight: 70.295 kg

DRUGS (11)
  1. ACTOS [Concomitant]
     Indication: TYPE 2 DIABETES MELLITUS
     Dosage: 30 MG, QD
     Route: 065
     Dates: start: 20111001
  2. IRON [Concomitant]
     Indication: ANAEMIA
     Dosage: UNK
     Route: 065
     Dates: start: 20110501
  3. CENTRUM SILVER [Concomitant]
     Indication: ROUTINE HEALTH MAINTENANCE
     Dosage: UNK
     Route: 065
     Dates: start: 20050101
  4. NORTRIPTYLINE HCL [Concomitant]
     Indication: NEUROPATHY PERIPHERAL
     Dosage: 10 MG, QD
     Route: 065
     Dates: start: 20070101
  5. DULCOLAX [Suspect]
     Indication: COLONOSCOPY
     Dosage: 4 TABLETS, UNK
     Route: 048
     Dates: start: 20110501, end: 20110501
  6. POLYETHYLENE GLYCOL 3350 [Suspect]
     Indication: COLONOSCOPY
     Dosage: 8 OZ DILUTED IN 64 OZ GATORADE, EVERY 15-20 MIN UNITL GONE
     Route: 048
     Dates: start: 20110501, end: 20110501
  7. VITAMIN B-12 [Concomitant]
     Indication: ANAEMIA VITAMIN B12 DEFICIENCY
     Dosage: 2000 MCG,
     Route: 065
     Dates: start: 20050101
  8. VIT C [Concomitant]
     Indication: ROUTINE HEALTH MAINTENANCE
     Dosage: 500 MG,
     Route: 065
     Dates: start: 20060101
  9. METFORMIN HCL [Concomitant]
     Indication: TYPE 2 DIABETES MELLITUS
     Dosage: 500 MG, BID
     Route: 065
     Dates: start: 20040101
  10. METOPROLOL TARTRATE [Concomitant]
     Indication: CARDIAC DISORDER
     Dosage: 12.5 MG, BID
     Route: 065
     Dates: start: 20040101
  11. ASPIRIN [Concomitant]
     Indication: PROPHYLAXIS
     Dosage: 81 MG, QD
     Route: 065
     Dates: start: 20040101

REACTIONS (7)
  - OFF LABEL USE [None]
  - PRESYNCOPE [None]
  - FALL [None]
  - VOMITING [None]
  - LOSS OF CONSCIOUSNESS [None]
  - HEAD INJURY [None]
  - OVERDOSE [None]
